FAERS Safety Report 17071850 (Version 2)
Quarter: 2019Q4

REPORT INFORMATION
  Report Type: Spontaneous
  Country: FR (occurrence: FR)
  Receive Date: 20191125
  Receipt Date: 20191203
  Transmission Date: 20200122
  Serious: Yes (Life-Threatening, Hospitalization)
  Sender: FDA-Public Use
  Company Number: FR-PFIZER INC-2019508957

PATIENT
  Age: 87 Year
  Sex: Female
  Weight: 77 kg

DRUGS (4)
  1. ELIQUIS [Suspect]
     Active Substance: APIXABAN
     Indication: ATRIAL FIBRILLATION
  2. CALCIPARINE [Suspect]
     Active Substance: HEPARIN CALCIUM
     Indication: ATRIAL FIBRILLATION
     Dosage: 1 MILLILITER PER DAY
     Route: 058
     Dates: start: 20191104, end: 20191106
  3. METHYLPREDNISOLONE SODIUM SUCCINATE. [Suspect]
     Active Substance: METHYLPREDNISOLONE SODIUM SUCCINATE
     Indication: HYPERSENSITIVITY
     Dosage: 120 MILLIGRAM PER DAY
     Route: 042
     Dates: start: 20191103, end: 20191104
  4. ELIQUIS [Suspect]
     Active Substance: APIXABAN
     Indication: CEREBROVASCULAR ACCIDENT PROPHYLAXIS
     Dosage: 10 MILLIGRAM PER DAY
     Route: 048
     Dates: start: 20191103, end: 20191104

REACTIONS (1)
  - Haematoma muscle [Not Recovered/Not Resolved]

NARRATIVE: CASE EVENT DATE: 20191104
